FAERS Safety Report 6786247-8 (Version None)
Quarter: 2010Q2

REPORT INFORMATION
  Report Type: 
  Country: None (occurrence: None)
  Receive Date: 20100623
  Receipt Date: 20100618
  Transmission Date: 20101027
  Serious: Yes (Other)
  Sender: FDA-Public Use
  Company Number: FR-ROCHE-702488

PATIENT
  Sex: Male
  Weight: 39.9 kg

DRUGS (7)
  1. ROACTEMRA [Suspect]
     Dosage: FORM: INFUSION, OTHER INDICATION: STILL DISEASE
     Route: 042
     Dates: start: 20090201
  2. ROACTEMRA [Suspect]
     Route: 042
     Dates: start: 20100101, end: 20100301
  3. ROACTEMRA [Suspect]
     Route: 042
     Dates: start: 20100301, end: 20100422
  4. AERIUS [Concomitant]
     Dosage: START DATE: FOR A LONG TIME
  5. SERETIDE [Concomitant]
     Dosage: START DATE: FOR A LONG TIME
  6. VENTOLIN [Concomitant]
     Dosage: START DATE: FOR A LONG TIME
  7. CORTANCYL [Concomitant]
     Dates: start: 20090201, end: 20091101

REACTIONS (2)
  - RASH [None]
  - VASCULITIS [None]
